FAERS Safety Report 10657394 (Version 1)
Quarter: 2014Q4

REPORT INFORMATION
  Report Type: Spontaneous
  Country: US (occurrence: None)
  Receive Date: 20141216
  Receipt Date: 20141216
  Transmission Date: 20150529
  Serious: Yes (Death)
  Sender: FDA-Public Use
  Company Number: None

PATIENT
  Age: 80 Year
  Sex: Male

DRUGS (15)
  1. SIMVASTATIN. [Concomitant]
     Active Substance: SIMVASTATIN
  2. LIDOCAINE. [Concomitant]
     Active Substance: LIDOCAINE
  3. IPRATR0PIN/ ALB [Concomitant]
  4. DIGOXIN. [Concomitant]
     Active Substance: DIGOXIN
  5. HYDROCODONE/ACETAMINOPHEN [Concomitant]
     Active Substance: ACETAMINOPHEN\HYDROCODONE
  6. PANTOPRAZOLE [Concomitant]
     Active Substance: PANTOPRAZOLE SODIUM
  7. ALPRAZOLAM. [Concomitant]
     Active Substance: ALPRAZOLAM
  8. CARVEDILOL. [Concomitant]
     Active Substance: CARVEDILOL
  9. FLUCONAZOLE. [Concomitant]
     Active Substance: FLUCONAZOLE
  10. XARELTO [Concomitant]
     Active Substance: RIVAROXABAN
  11. TASIGNA [Suspect]
     Active Substance: NILOTINIB
     Indication: METASTATIC NEOPLASM
     Route: 048
     Dates: start: 20131002, end: 20141205
  12. PREDNISONE. [Concomitant]
     Active Substance: PREDNISONE
  13. FUROSEMIDE. [Concomitant]
     Active Substance: FUROSEMIDE
  14. NYSTATIN. [Concomitant]
     Active Substance: NYSTATIN
  15. SILDENAFIL. [Suspect]
     Active Substance: SILDENAFIL
     Indication: PULMONARY ARTERIAL HYPERTENSION
     Route: 048
     Dates: start: 20140816, end: 20141205

REACTIONS (1)
  - Death [None]

NARRATIVE: CASE EVENT DATE: 20141205
